FAERS Safety Report 6716599-6 (Version None)
Quarter: 2010Q2

REPORT INFORMATION
  Report Type: 
  Country: None (occurrence: None)
  Receive Date: 20100507
  Receipt Date: 20100426
  Transmission Date: 20101027
  Serious: Yes (Death)
  Sender: FDA-Public Use
  Company Number: GB-GENENTECH-301232

PATIENT

DRUGS (6)
  1. MABTHERA [Suspect]
     Indication: IDIOPATHIC THROMBOCYTOPENIC PURPURA
     Dosage: UNK
     Route: 065
     Dates: start: 20030801
  2. MABTHERA [Suspect]
     Dosage: UNK
     Dates: start: 20060601
  3. CYCLOSPORINE [Concomitant]
     Indication: IDIOPATHIC THROMBOCYTOPENIC PURPURA
     Dosage: UNK
  4. AZATHIOPRINE [Concomitant]
     Indication: IDIOPATHIC THROMBOCYTOPENIC PURPURA
     Dosage: UNK
  5. CYCLOPHOSPHAMIDE [Concomitant]
     Indication: IDIOPATHIC THROMBOCYTOPENIC PURPURA
     Dosage: UNK
  6. IMMUNE GLOBULIN INTRAVENOUS (HUMAN) [Concomitant]
     Indication: IDIOPATHIC THROMBOCYTOPENIC PURPURA
     Dosage: UNK
     Route: 042

REACTIONS (9)
  - ACUTE HEPATIC FAILURE [None]
  - ADENOVIRUS INFECTION [None]
  - HEPATIC ENCEPHALOPATHY [None]
  - HYPOGAMMAGLOBULINAEMIA [None]
  - IDIOPATHIC THROMBOCYTOPENIC PURPURA [None]
  - OTITIS MEDIA [None]
  - PNEUMONIA [None]
  - SEPSIS [None]
  - TUBERCULOSIS [None]
